FAERS Safety Report 15240393 (Version 1)
Quarter: 2018Q4

REPORT INFORMATION
  Report Type: Spontaneous
  Country: FR (occurrence: FR)
  Receive Date: 20180804
  Receipt Date: 20180804
  Transmission Date: 20190204
  Serious: Yes (Hospitalization, Other)
  Sender: FDA-Public Use
  Company Number: FR-ACCORD-070450

PATIENT
  Age: 37 Year
  Sex: Female

DRUGS (2)
  1. NALTREXONE/NALTREXONE HYDROCHLORIDE [Suspect]
     Active Substance: NALTREXONE
     Indication: ALCOHOLIC
     Dosage: UNSPECIFIED
     Route: 048
     Dates: start: 20171122, end: 20171122
  2. METHADONE/METHADONE HYDROCHLORIDE [Interacting]
     Active Substance: METHADONE HYDROCHLORIDE
     Indication: DRUG DEPENDENCE
     Dosage: UNSPECIFIED
     Route: 048
     Dates: end: 20171122

REACTIONS (4)
  - Medication error [Unknown]
  - Withdrawal syndrome [Unknown]
  - Drug interaction [Unknown]
  - Vomiting [Recovered/Resolved]

NARRATIVE: CASE EVENT DATE: 20171122
